FAERS Safety Report 6328383-6 (Version None)
Quarter: 2009Q3

REPORT INFORMATION
  Report Type: 
  Country: None (occurrence: None)
  Receive Date: 20090825
  Receipt Date: 20090324
  Transmission Date: 20100115
  Serious: No
  Sender: FDA-Public Use
  Company Number: US-ABBOTT-09P-163-0564672-00

PATIENT
  Sex: Female

DRUGS (4)
  1. SYNTHROID [Suspect]
     Indication: AUTOIMMUNE THYROIDITIS
     Dosage: 1 IN 24 HRS DAILY
     Route: 048
     Dates: start: 19920101
  2. ORTHO TRI-CYCLEN [Concomitant]
     Indication: DRUG USE FOR UNKNOWN INDICATION
     Dosage: 1 IN 24 HRS DAILY
     Route: 048
  3. CLARINEX [Concomitant]
     Indication: HYPERSENSITIVITY
     Dosage: DAILY AS NEEDED
     Route: 048
  4. VENTOLIN HFA [Concomitant]
     Indication: ASTHMA
     Route: 055

REACTIONS (3)
  - ABDOMINAL DISTENSION [None]
  - COELIAC DISEASE [None]
  - ELECTROMYOGRAM ABNORMAL [None]
